FAERS Safety Report 16307580 (Version 3)
Quarter: 2021Q1

REPORT INFORMATION
  Report Type: Spontaneous
  Country: US (occurrence: US)
  Receive Date: 20190514
  Receipt Date: 20210202
  Transmission Date: 20210419
  Serious: Yes (Hospitalization, Other)
  Sender: FDA-Public Use
  Company Number: US-ASTRAZENECA-2019SE67358

PATIENT
  Age: 16106 Day
  Sex: Female
  Weight: 123.4 kg

DRUGS (61)
  1. PRILOSEC [Suspect]
     Active Substance: OMEPRAZOLE MAGNESIUM
     Indication: GASTROOESOPHAGEAL REFLUX DISEASE
     Dosage: GENERIC
     Route: 065
     Dates: start: 201101, end: 201806
  2. XARELTO [Concomitant]
     Active Substance: RIVAROXABAN
     Indication: ANTICOAGULANT THERAPY
     Dates: start: 2016
  3. CITALOPRAM [Concomitant]
     Active Substance: CITALOPRAM HYDROBROMIDE
  4. FLUCONAZOLE. [Concomitant]
     Active Substance: FLUCONAZOLE
  5. SULPHAMETHOXAZOLE [Concomitant]
     Active Substance: SULFAMETHOXAZOLE
  6. SYNTHROID [Concomitant]
     Active Substance: LEVOTHYROXINE SODIUM
  7. MAGNESIUM OXIDE. [Concomitant]
     Active Substance: MAGNESIUM OXIDE
  8. ESCITALOPRAM [Concomitant]
     Active Substance: ESCITALOPRAM OXALATE
  9. LISINOPRIL. [Concomitant]
     Active Substance: LISINOPRIL
     Indication: HYPERTENSION
     Dates: start: 20140313, end: 20160421
  10. FENOFIBRATE. [Concomitant]
     Active Substance: FENOFIBRATE
     Indication: BLOOD CHOLESTEROL ABNORMAL
     Dates: start: 202002
  11. GABAPENTIN. [Concomitant]
     Active Substance: GABAPENTIN
  12. ACYCLOVIR. [Concomitant]
     Active Substance: ACYCLOVIR
  13. METRONIDAZOLE. [Concomitant]
     Active Substance: METRONIDAZOLE
  14. CYCLOBENZAPRINE. [Concomitant]
     Active Substance: CYCLOBENZAPRINE
  15. PENICILLIN VK [Concomitant]
     Active Substance: PENICILLIN V POTASSIUM
  16. DICLOFENAC [Concomitant]
     Active Substance: DICLOFENAC
  17. OXYCODONE [Concomitant]
     Active Substance: OXYCODONE
  18. HYDROCHLOROTHIAZIDE. [Concomitant]
     Active Substance: HYDROCHLOROTHIAZIDE
  19. LACTULOSE. [Concomitant]
     Active Substance: LACTULOSE
  20. ALPRAZOLAM. [Concomitant]
     Active Substance: ALPRAZOLAM
  21. POTASSIUM CL [Concomitant]
     Active Substance: POTASSIUM CHLORIDE
     Indication: HYPOKALAEMIA
     Dates: start: 20130328, end: 20150112
  22. TRIAMTERENE. [Concomitant]
     Active Substance: TRIAMTERENE
     Indication: HYPERTENSION
     Dates: start: 20120206, end: 20160304
  23. VITAMIN D [Concomitant]
     Active Substance: VITAMIN D NOS
     Indication: VITAMIN D DEFICIENCY
     Dates: start: 20140313, end: 20160516
  24. LEXAPRO [Concomitant]
     Active Substance: ESCITALOPRAM OXALATE
     Indication: ANXIETY
     Dates: start: 2016
  25. LYRICA [Concomitant]
     Active Substance: PREGABALIN
     Indication: FIBROMYALGIA
     Dates: start: 2014
  26. CYCLOBENZAPRINE. [Concomitant]
     Active Substance: CYCLOBENZAPRINE
  27. PHENTERMINE. [Concomitant]
     Active Substance: PHENTERMINE
  28. CIPROFLOXACIN. [Concomitant]
     Active Substance: CIPROFLOXACIN
  29. ZOLPIDEM [Concomitant]
     Active Substance: ZOLPIDEM TARTRATE
  30. IBUPROFEN. [Concomitant]
     Active Substance: IBUPROFEN
  31. PREVACID [Suspect]
     Active Substance: LANSOPRAZOLE
     Indication: GASTROOESOPHAGEAL REFLUX DISEASE
     Route: 065
  32. AMITRIPTYLINE [Concomitant]
     Active Substance: AMITRIPTYLINE
     Indication: SLEEP DISORDER THERAPY
     Dates: start: 2014
  33. LEVOTHYROXINE SODIUM. [Concomitant]
     Active Substance: LEVOTHYROXINE SODIUM
     Indication: THYROID DISORDER
     Dates: start: 2014
  34. METFORMIN [Concomitant]
     Active Substance: METFORMIN HYDROCHLORIDE
     Indication: DIABETES MELLITUS
     Dates: start: 2018
  35. PEPTO?BISMOL [Concomitant]
     Active Substance: BISMUTH SUBSALICYLATE
     Dosage: AS NEEDED
     Dates: end: 2018
  36. TUMS [Concomitant]
     Active Substance: CALCIUM CARBONATE
     Dosage: AS NEEDED
     Dates: end: 2018
  37. PRAVASTATIN. [Concomitant]
     Active Substance: PRAVASTATIN
  38. MIRTAZAPINE. [Concomitant]
     Active Substance: MIRTAZAPINE
  39. POLYETHYLENE GLYCOL [Concomitant]
     Active Substance: POLYETHYLENE GLYCOLS
  40. AMLODIPINE [Concomitant]
     Active Substance: AMLODIPINE BESYLATE
     Indication: HYPERTENSION
     Dates: start: 20130214, end: 20160119
  41. FLEXERIL [Concomitant]
     Active Substance: CYCLOBENZAPRINE HYDROCHLORIDE
     Indication: MUSCLE RELAXANT THERAPY
     Dates: start: 2020
  42. TORSEMIDE. [Concomitant]
     Active Substance: TORSEMIDE
     Indication: FLUID RETENTION
     Dates: start: 2017
  43. NORVASC [Concomitant]
     Active Substance: AMLODIPINE BESYLATE
     Indication: HYPERTENSION
     Dates: start: 2018
  44. TRAZODONE [Concomitant]
     Active Substance: TRAZODONE HYDROCHLORIDE
  45. TIZANIDINE. [Concomitant]
     Active Substance: TIZANIDINE
  46. CLONAZEPAM. [Concomitant]
     Active Substance: CLONAZEPAM
  47. CLOTRIMAZOLE AND BETAMETHASONE DIPROPIONATE [Concomitant]
     Active Substance: BETAMETHASONE\BETAMETHASONE DIPROPIONATE\CLOTRIMAZOLE
  48. CLINDAMYCIN. [Concomitant]
     Active Substance: CLINDAMYCIN
  49. AZITHROMYCIN ANHYDROUS. [Concomitant]
     Active Substance: AZITHROMYCIN ANHYDROUS
  50. TAGAMET [Concomitant]
     Active Substance: CIMETIDINE
  51. CEPHALEXIN. [Concomitant]
     Active Substance: CEPHALEXIN
  52. AMOXICILLIN. [Concomitant]
     Active Substance: AMOXICILLIN
  53. CHERATUSSIN AC [Concomitant]
     Active Substance: CODEINE PHOSPHATE\GUAIFENESIN
  54. CHANTIX [Concomitant]
     Active Substance: VARENICLINE TARTRATE
  55. NICODERM CQ [Concomitant]
     Active Substance: NICOTINE
  56. PRILOSEC [Suspect]
     Active Substance: OMEPRAZOLE MAGNESIUM
     Indication: GASTROOESOPHAGEAL REFLUX DISEASE
     Route: 048
     Dates: start: 201101, end: 201806
  57. TOPAMAX [Concomitant]
     Active Substance: TOPIRAMATE
     Indication: MIGRAINE
     Dates: start: 2018
  58. NORCO [Concomitant]
     Active Substance: ACETAMINOPHEN\HYDROCODONE BITARTRATE
     Indication: PAIN
     Dates: start: 2014
  59. ALKA?SELTZER [Concomitant]
     Active Substance: ANHYDROUS CITRIC ACID\ASPIRIN\SODIUM BICARBONATE
     Dosage: AS NEEDED
     Dates: end: 2018
  60. FUROSEMIDE. [Concomitant]
     Active Substance: FUROSEMIDE
  61. NITROFURANTOIN. [Concomitant]
     Active Substance: NITROFURANTOIN

REACTIONS (3)
  - End stage renal disease [Unknown]
  - Chronic kidney disease [Not Recovered/Not Resolved]
  - Tubulointerstitial nephritis [Unknown]

NARRATIVE: CASE EVENT DATE: 20160316
